FAERS Safety Report 11070769 (Version 2)
Quarter: 2015Q2

REPORT INFORMATION
  Report Type: Report from Study
  Country: US (occurrence: US)
  Receive Date: 20150427
  Receipt Date: 20150430
  Transmission Date: 20150821
  Serious: No
  Sender: FDA-Public Use
  Company Number: US-ASTRAZENECA-2015SE21852

PATIENT
  Age: 49 Year
  Sex: Female
  Weight: 62.6 kg

DRUGS (7)
  1. VITAMIN E [Concomitant]
     Active Substance: .ALPHA.-TOCOPHEROL
     Indication: BLOOD CALCIUM
     Dates: start: 2013
  2. VIIBRYD [Concomitant]
     Active Substance: VILAZODONE HYDROCHLORIDE
     Indication: ANXIETY
     Route: 048
     Dates: start: 2013
  3. PREMID CREAM [Concomitant]
     Indication: VULVOVAGINAL DRYNESS
  4. CRESTOR [Suspect]
     Active Substance: ROSUVASTATIN CALCIUM
     Indication: BLOOD CHOLESTEROL
     Route: 048
     Dates: start: 20150323, end: 20150327
  5. CALCIUM [Concomitant]
     Active Substance: CALCIUM
     Indication: OSTEOPOROSIS POSTMENOPAUSAL
     Route: 048
  6. VITAMINS OTC [Concomitant]
  7. CRESTOR [Suspect]
     Active Substance: ROSUVASTATIN CALCIUM
     Indication: BLOOD CHOLESTEROL
     Route: 048
     Dates: start: 2010, end: 201502

REACTIONS (15)
  - Clostridium difficile infection [Unknown]
  - Diarrhoea [Recovered/Resolved]
  - Weight decreased [Unknown]
  - Abdominal pain upper [Unknown]
  - Muscle strain [Unknown]
  - Frustration [Unknown]
  - Insomnia [Unknown]
  - Feeding disorder [Unknown]
  - Anxiety [Unknown]
  - Malaise [Unknown]
  - Tobacco abuse [Unknown]
  - Drug dose omission [Unknown]
  - Osteoporosis postmenopausal [Unknown]
  - Abdominal pain [Unknown]
  - Helicobacter gastritis [Unknown]

NARRATIVE: CASE EVENT DATE: 2014
